FAERS Safety Report 5198899-7 (Version None)
Quarter: 2006Q4

REPORT INFORMATION
  Report Type: 
  Country: None (occurrence: None)
  Receive Date: 20060921
  Receipt Date: 20060208
  Transmission Date: 20070319
  Serious: Yes (Other)
  Sender: FDA-Public Use
  Company Number: 2006020283

PATIENT
  Age: 54 Year
  Sex: Female
  Weight: 55.7924 kg

DRUGS (21)
  1. ZYRTEC [Suspect]
     Indication: SEASONAL ALLERGY
     Dosage: SEE IMAGE
     Dates: end: 20060101
  2. ZYRTEC [Suspect]
     Indication: SINUS DISORDER
     Dosage: SEE IMAGE
     Dates: end: 20060101
  3. ZYRTEC [Suspect]
     Indication: SEASONAL ALLERGY
     Dosage: SEE IMAGE
     Dates: start: 20051201
  4. ZYRTEC [Suspect]
     Indication: SINUS DISORDER
     Dosage: SEE IMAGE
     Dates: start: 20051201
  5. FUROSEMIDE [Concomitant]
  6. GUAIFENESIN [Concomitant]
  7. OXYGEN (OXYGEN) [Concomitant]
  8. ALLEGRA [Concomitant]
  9. ASTELIN [Concomitant]
  10. NASACORT AQ (TRIAMCINOLONE ACETONIDE) [Concomitant]
  11. SINGULAIR [Concomitant]
  12. ALLOPURINOL [Concomitant]
  13. FLOVENT [Concomitant]
  14. ATROVENT [Concomitant]
  15. SPIRIVA [Concomitant]
  16. DURADRIN (DICHLORALPHENAZONE, ISOMETHEPTENE MUCATE, PARACETAMOL) [Concomitant]
  17. FOSAMAX [Concomitant]
  18. MOBIC [Concomitant]
  19. PREDNISONE TAB [Concomitant]
  20. ARAVA [Concomitant]
  21. ALL OTHER THERAPEUTIC PRODUCTS (ALL OTHER THERAPEUTIC PRODUCTS) [Concomitant]

REACTIONS (4)
  - DIZZINESS [None]
  - DRUG INEFFECTIVE [None]
  - LOSS OF CONSCIOUSNESS [None]
  - SOMNOLENCE [None]
